FAERS Safety Report 7485593-2 (Version None)
Quarter: 2011Q2

REPORT INFORMATION
  Report Type: 
  Country: None (occurrence: None)
  Receive Date: 20110517
  Receipt Date: 20110511
  Transmission Date: 20111010
  Serious: Yes (Other)
  Sender: FDA-Public Use
  Company Number: US-ABBOTT-11P-163-0725170-00

PATIENT
  Sex: Female
  Weight: 44.492 kg

DRUGS (16)
  1. RESTASIS [Concomitant]
     Indication: DRY EYE
  2. LIDODERM [Concomitant]
     Indication: PAIN
  3. DERMOTIC OIL [Concomitant]
     Indication: SKIN DISORDER
  4. CELEBREX [Concomitant]
     Indication: RHEUMATOID ARTHRITIS
  5. PATADAY EYE DROPS [Concomitant]
     Indication: HYPERSENSITIVITY
  6. SYNTHROID [Concomitant]
     Indication: HYPOTHYROIDISM
  7. CALCIUM [Concomitant]
     Indication: MINERAL SUPPLEMENTATION
  8. ADVAIR DISKUS 100/50 [Concomitant]
     Indication: CHRONIC OBSTRUCTIVE PULMONARY DISEASE
  9. PREDNISONE TAB [Concomitant]
     Indication: RHEUMATOID ARTHRITIS
  10. ZOCOR [Concomitant]
     Indication: BLOOD CHOLESTEROL INCREASED
  11. NASACORT [Concomitant]
     Indication: HYPERSENSITIVITY
  12. XANAX [Concomitant]
     Indication: ANXIETY
  13. SOMA [Concomitant]
     Indication: MUSCLE RELAXANT THERAPY
  14. HUMIRA [Suspect]
     Indication: RHEUMATOID ARTHRITIS
     Dates: start: 20070401
  15. POTASSIUM [Concomitant]
     Indication: MINERAL SUPPLEMENTATION
  16. ALLEGRA [Concomitant]
     Indication: HYPERSENSITIVITY

REACTIONS (2)
  - VISION BLURRED [None]
  - HEPATITIS B [None]
